FAERS Safety Report 7611390-0 (Version None)
Quarter: 2011Q3

REPORT INFORMATION
  Report Type: 
  Country: None (occurrence: None)
  Receive Date: 20110715
  Receipt Date: 20110706
  Transmission Date: 20111222
  Serious: Yes (Hospitalization)
  Sender: FDA-Public Use
  Company Number: US-ROCHE-781309

PATIENT
  Sex: Male
  Weight: 121.6 kg

DRUGS (5)
  1. AVASTIN [Suspect]
     Route: 042
     Dates: start: 20080514
  2. LEUCOVORIN CALCIUM [Suspect]
     Dosage: TWO TIMES ON TWO SEPARATE COURSE OF TREATMENT
     Route: 065
  3. ELOXATIN [Suspect]
     Dosage: TWO TIMES ON TWO SEPARATE COURSE OF TREATMENT.
     Route: 042
     Dates: start: 20080514, end: 20110516
  4. FLUOROURACIL [Suspect]
     Dosage: TWO TIMES ON TWO SEPARATE COURSE OF TREATMENT
     Route: 065
  5. IRINOTECAN HCL [Suspect]
     Route: 065

REACTIONS (1)
  - RENAL IMPAIRMENT [None]
